FAERS Safety Report 5307611-X (Version None)
Quarter: 2007Q2

REPORT INFORMATION
  Report Type: 
  Country: None (occurrence: None)
  Receive Date: 20070425
  Receipt Date: 20070423
  Transmission Date: 20071010
  Serious: Yes (Hospitalization)
  Sender: FDA-Public Use
  Company Number: US-SANOFI-SYNTHELABO-F01200700193

PATIENT
  Sex: Male

DRUGS (13)
  1. ACTIQ [Concomitant]
     Dates: start: 20061115, end: 20070208
  2. ALENE [Concomitant]
     Dates: start: 20061115, end: 20070208
  3. MILES MAGIC MOUTHWASH [Concomitant]
     Dates: start: 20070109, end: 20070208
  4. COMPAZINE [Concomitant]
     Dates: start: 20070109, end: 20070208
  5. FOSINOPRIL SODIUM [Concomitant]
     Dates: start: 20030615, end: 20070208
  6. MULTIVITAMIN NOS [Concomitant]
     Dates: start: 19970615, end: 20070208
  7. AMBIEN [Concomitant]
     Dates: start: 20040615, end: 20070208
  8. SIMVASTATIN [Concomitant]
     Dates: start: 20020615, end: 20070208
  9. METOPROLOL SUCCINATE [Concomitant]
     Dates: start: 20010615, end: 20070208
  10. METFORMIN HCL [Concomitant]
     Dates: start: 20010615, end: 20070208
  11. BEVACIZUMAB [Suspect]
     Route: 042
     Dates: start: 20070123, end: 20070123
  12. OXALIPLATIN [Suspect]
     Indication: COLORECTAL CANCER METASTATIC
     Route: 042
     Dates: start: 20070123, end: 20070123
  13. CAPECITABINE [Suspect]
     Dosage: DAYS 1 TO 8
     Route: 048
     Dates: start: 20070123

REACTIONS (4)
  - BLOOD UREA INCREASED [None]
  - DIARRHOEA [None]
  - LETHARGY [None]
  - WHITE BLOOD CELL COUNT DECREASED [None]
